FAERS Safety Report 6361053-7 (Version None)
Quarter: 2009Q3

REPORT INFORMATION
  Report Type: 
  Country: None (occurrence: None)
  Receive Date: 20090916
  Receipt Date: 20090916
  Transmission Date: 20100115
  Serious: Yes (Other)
  Sender: FDA-Public Use
  Company Number: None

PATIENT
  Sex: Male

DRUGS (4)
  1. GEM 21 S OSTEOHEALTH CO-, A DIVISION OF LUITPOLD PHARMACEUTICALS [Suspect]
     Indication: PERIODONTITIS
     Dosage: ONE APPLICATION
     Dates: start: 20080115
  2. PUROS BONE GRAFT [Concomitant]
  3. RESENTEX MEMBRANE [Concomitant]
  4. TITANIUM TACKS [Concomitant]

REACTIONS (2)
  - LEUKOPLAKIA [None]
  - SQUAMOUS CELL CARCINOMA [None]
